FAERS Safety Report 8877448 (Version 1)
Quarter: 2012Q4

REPORT INFORMATION
  Report Type: Spontaneous
  Country: US (occurrence: None)
  Receive Date: 20121026
  Receipt Date: 20121026
  Transmission Date: 20130627
  Serious: Yes (Other)
  Sender: FDA-Public Use
  Company Number: ACO_32567_2012

PATIENT
  Age: 65 Year
  Sex: Female

DRUGS (12)
  1. AMPYRA (DALFAMPRIDINE) TABLET [Suspect]
     Indication: RELAPSING-REMITTING MULTIPLE SCLEROSIS
     Dates: end: 201204
  2. VITAMIN C (ASCORBIC ACID) [Concomitant]
  3. VITAMIN D (ERGOCALCIFEROL) [Concomitant]
  4. ALLOPURINOL (ALLOPURINOL) [Concomitant]
  5. BACLOFEN (BACLOFEN) [Concomitant]
  6. CALCIUM (CALCIUM) [Concomitant]
  7. CREON (PANCREATIN) [Concomitant]
  8. CRESTOR (ROSUVASTATIN CALCIUM) [Concomitant]
  9. HYOSCYAMINE (HYOSCYAMINE) [Concomitant]
  10. IBUPROFEN (IBUPROFEN) [Concomitant]
  11. POTASSIUM (POTASSIUM BICARBONATE, POTASSIUM CHLORIDE) [Concomitant]
  12. SYNTHROID (LEVOTHYROXINE SODIUM) [Concomitant]

REACTIONS (1)
  - Renal function test abnormal [None]
